FAERS Safety Report 15696643 (Version 2)
Quarter: 2019Q4

REPORT INFORMATION
  Report Type: Report from Study
  Country: US (occurrence: US)
  Receive Date: 20181206
  Receipt Date: 20191127
  Transmission Date: 20200122
  Serious: Yes (Death)
  Sender: FDA-Public Use
  Company Number: US-ACTELION-A-NJ2017-161877

PATIENT
  Age: 81 Year
  Sex: Female
  Weight: 134.97 kg

DRUGS (3)
  1. OPSUMIT [Suspect]
     Active Substance: MACITENTAN
     Indication: PULMONARY HYPERTENSION
     Dosage: 10 MG, QD
     Route: 048
     Dates: start: 20171024, end: 2018
  2. ADEMPAS [Concomitant]
     Active Substance: RIOCIGUAT
     Dosage: 1.5 MG, TID
     Route: 048
  3. UPTRAVI [Concomitant]
     Active Substance: SELEXIPAG

REACTIONS (19)
  - Decreased appetite [Unknown]
  - Red blood cell count decreased [Unknown]
  - Weight decreased [Unknown]
  - Sputum discoloured [Not Recovered/Not Resolved]
  - Taste disorder [Unknown]
  - Dysphonia [Unknown]
  - Nasal congestion [Unknown]
  - Memory impairment [Unknown]
  - Dyspnoea [Unknown]
  - Bronchitis [Unknown]
  - Hospice care [Unknown]
  - Death [Fatal]
  - Joint swelling [Unknown]
  - Fatigue [Unknown]
  - Productive cough [Not Recovered/Not Resolved]
  - Red cell distribution width increased [Unknown]
  - Cataract [Unknown]
  - Peripheral swelling [Unknown]
  - Mean cell volume increased [Unknown]

NARRATIVE: CASE EVENT DATE: 201711
